FAERS Safety Report 6129089-9 (Version None)
Quarter: 2009Q1

REPORT INFORMATION
  Report Type: 
  Country: None (occurrence: None)
  Receive Date: 20090323
  Receipt Date: 20090323
  Transmission Date: 20090719
  Serious: Yes (Other)
  Sender: FDA-Public Use
  Company Number: None

PATIENT
  Age: 73 Year
  Sex: Female
  Weight: 74.8435 kg

DRUGS (2)
  1. AGGRENOX [Suspect]
     Indication: CAROTID ARTERY OCCLUSION
     Dosage: TWICE A  DAY
     Dates: start: 20090223, end: 20090304
  2. AGGRENOX [Suspect]
     Indication: DIZZINESS
     Dosage: TWICE A  DAY
     Dates: start: 20090223, end: 20090304

REACTIONS (2)
  - DIZZINESS [None]
  - URTICARIA [None]
